FAERS Safety Report 6028046-0 (Version None)
Quarter: 2008Q4

REPORT INFORMATION
  Report Type: 
  Country: None (occurrence: None)
  Receive Date: 20081231
  Receipt Date: 20081217
  Transmission Date: 20090506
  Serious: Yes (Other)
  Sender: FDA-Public Use
  Company Number: 2008S1022429

PATIENT
  Age: 47 Year
  Sex: Female

DRUGS (3)
  1. FLUOXETINE [Suspect]
     Indication: DEPRESSION
     Dosage: 20 MG; ; ORAL
     Route: 048
     Dates: start: 20081111, end: 20081128
  2. MIRTAZAPINE [Concomitant]
  3. TEMAZEPAM [Concomitant]

REACTIONS (2)
  - ERYTHEMA [None]
  - PRURITUS [None]
